FAERS Safety Report 25663724 (Version 1)
Quarter: 2025Q3

REPORT INFORMATION
  Report Type: Other
  Country: EU (occurrence: EU)
  Receive Date: 20250811
  Receipt Date: 20250811
  Transmission Date: 20251020
  Serious: Yes (Life-Threatening, Other)
  Sender: IBSA INSTITUT BIOCHIMIQUE
  Company Number: EU-IBSA PHARMA INC.-2025IBS000480

PATIENT
  Age: 30 Year
  Sex: Male

DRUGS (3)
  1. LEVOTHYROXINE SODIUM [Suspect]
     Active Substance: LEVOTHYROXINE SODIUM
     Indication: Product used for unknown indication
     Dates: start: 20210322, end: 20210322
  2. CITALOPRAM [Suspect]
     Active Substance: CITALOPRAM
     Indication: Product used for unknown indication
     Dates: start: 20210322, end: 20210322
  3. ESCITALOPRAM [Suspect]
     Active Substance: ESCITALOPRAM OXALATE
     Indication: Product used for unknown indication
     Dates: start: 20210322, end: 20210322

REACTIONS (3)
  - Suicide attempt [Recovering/Resolving]
  - Somnolence [Recovering/Resolving]
  - Toxicity to various agents [Recovering/Resolving]
